FAERS Safety Report 10075456 (Version 3)
Quarter: 2014Q2

REPORT INFORMATION
  Report Type: Spontaneous
  Country: IT (occurrence: None)
  Receive Date: 20140318
  Receipt Date: 20140616
  Transmission Date: 20141212
  Serious: Yes (Other)
  Sender: FDA-Public Use
  Company Number: 2014IT0098

PATIENT
  Age: 10 Month
  Sex: Male

DRUGS (1)
  1. ORFADIN [Suspect]
     Indication: TYROSINAEMIA
     Dosage: 1.28 MG/KG (1.28 MG/KG, 1 IN 1 D)
     Dates: start: 20130707, end: 20140207

REACTIONS (4)
  - Hepatic lesion [None]
  - Alpha 1 foetoprotein increased [None]
  - Drug ineffective [None]
  - Varicella [None]
